FAERS Safety Report 5170803-7 (Version None)
Quarter: 2006Q4

REPORT INFORMATION
  Report Type: 
  Country: None (occurrence: None)
  Receive Date: 20061205
  Receipt Date: 20061205
  Transmission Date: 20070319
  Serious: Yes (Hospitalization)
  Sender: FDA-Public Use
  Company Number: None

PATIENT
  Age: 58 Year
  Sex: Male
  Weight: 78.9259 kg

DRUGS (7)
  1. WARFARIN SODIUM [Suspect]
     Indication: OPEN REDUCTION OF FRACTURE
     Dosage: 5MG DAILY PO
     Route: 048
     Dates: start: 20061101, end: 20061201
  2. FERROUS SULFATE TAB [Concomitant]
  3. SERTRALINE [Concomitant]
  4. DILTIAZEM HCL [Concomitant]
  5. CALCIUM/VIT D [Concomitant]
  6. OXYCODONE AND ACETAMINOPHEN [Concomitant]
  7. MORPHINE SULFATE [Concomitant]

REACTIONS (5)
  - CONTUSION [None]
  - HAEMATOMA [None]
  - INCISION SITE HAEMORRHAGE [None]
  - INTERNATIONAL NORMALISED RATIO INCREASED [None]
  - OEDEMA PERIPHERAL [None]
